FAERS Safety Report 9633001 (Version 2)
Quarter: 2013Q4

REPORT INFORMATION
  Report Type: Spontaneous
  Country: VE (occurrence: VE)
  Receive Date: 20131018
  Receipt Date: 20131025
  Transmission Date: 20140711
  Serious: Yes (Hospitalization, Other)
  Sender: FDA-Public Use
  Company Number: VE-ROCHE-1289093

PATIENT
  Age: 32 Year
  Sex: Female

DRUGS (5)
  1. FORADIL [Suspect]
     Indication: ASTHMATIC CRISIS
     Dosage: INHALATION
     Route: 065
     Dates: start: 201008, end: 201306
  2. FORADIL [Suspect]
     Route: 065
     Dates: start: 20131011
  3. SALBUTAMOL [Concomitant]
  4. NAPROXEN SODIUM/PARACETAMOL [Concomitant]
  5. XOLAIR [Suspect]
     Indication: ASTHMATIC CRISIS
     Dosage: 6 CC DOSE PER MONTH
     Route: 058
     Dates: end: 201302

REACTIONS (4)
  - Asthmatic crisis [Recovered/Resolved]
  - Asthma [Not Recovered/Not Resolved]
  - Bone pain [Recovered/Resolved]
  - Drug ineffective [Unknown]
